FAERS Safety Report 9083671 (Version 1)
Quarter: 2013Q1

REPORT INFORMATION
  Report Type: Report from Study
  Country: US (occurrence: US)
  Receive Date: 20130131
  Receipt Date: 20130131
  Transmission Date: 20140127
  Serious: No
  Sender: FDA-Public Use
  Company Number: US-ABBOTT-12P-163-1001646-00

PATIENT
  Age: 39 Year
  Sex: Female

DRUGS (7)
  1. HUMIRA [Suspect]
     Indication: CROHN^S DISEASE
     Dates: start: 20121010, end: 20121010
  2. HUMIRA [Suspect]
     Dates: start: 20121023
  3. OXYCODONE [Concomitant]
     Indication: PAIN
  4. DEXAMETHASONE [Concomitant]
     Indication: HIDRADENITIS
  5. SILVER SULFADIAZINE [Concomitant]
     Indication: HIDRADENITIS
  6. NYSTATIN [Concomitant]
     Indication: HIDRADENITIS
     Route: 061
  7. BUPROPION [Concomitant]
     Indication: ANXIETY

REACTIONS (2)
  - Headache [Recovered/Resolved]
  - Headache [Recovered/Resolved]
